FAERS Safety Report 5744886-7 (Version None)
Quarter: 2008Q2

REPORT INFORMATION
  Report Type: 
  Country: None (occurrence: None)
  Receive Date: 20080516
  Receipt Date: 20080506
  Transmission Date: 20081010
  Serious: Yes (Hospitalization)
  Sender: FDA-Public Use
  Company Number: 6042760

PATIENT
  Age: 54 Year
  Sex: Female

DRUGS (1)
  1. LODOZ(TABLET) (HYDROCHLOROTHIAZIDE, BISOPROLOL FUMARATE) [Suspect]
     Indication: DRUG USE FOR UNKNOWN INDICATION
     Dosage: NOT REPORTED (1 DOSAGE FORMS, NOT REPORTED); ORAL
     Route: 048
     Dates: start: 20030101, end: 20080120

REACTIONS (1)
  - PEMPHIGUS [None]
